FAERS Safety Report 9401508 (Version 2)
Quarter: 2014Q1

REPORT INFORMATION
  Report Type: Report from Study
  Country: GB (occurrence: GB)
  Receive Date: 20130716
  Receipt Date: 20140325
  Transmission Date: 20141002
  Serious: Yes (Hospitalization)
  Sender: FDA-Public Use
  Company Number: GB-ROCHE-1248284

PATIENT
  Age: 88 Year
  Sex: Female
  Weight: 48.26 kg

DRUGS (1)
  1. RANIBIZUMAB [Suspect]
     Indication: AGE-RELATED MACULAR DEGENERATION
     Dosage: LAST DOSE PRIOR TO SAE WAS ON 05/DEC/2011.
     Route: 050
     Dates: start: 20101130

REACTIONS (2)
  - Fall [Unknown]
  - Hip fracture [Recovered/Resolved]
